APPROVED DRUG PRODUCT: NALOXONE HYDROCHLORIDE
Active Ingredient: NALOXONE HYDROCHLORIDE
Strength: 4MG/SPRAY
Dosage Form/Route: SPRAY, METERED;NASAL
Application: A209522 | Product #001
Applicant: TEVA PHARMACEUTICALS USA INC
Approved: Apr 19, 2019 | RLD: No | RS: No | Type: OTC